FAERS Safety Report 6022658-6 (Version None)
Quarter: 2008Q4

REPORT INFORMATION
  Report Type: 
  Country: None (occurrence: None)
  Receive Date: 20081230
  Receipt Date: 20080415
  Transmission Date: 20090506
  Serious: No
  Sender: FDA-Public Use
  Company Number: US-BAYER-200811671BCC

PATIENT
  Age: 35 Year
  Sex: Male
  Weight: 64 kg

DRUGS (1)
  1. ALEVE [Suspect]
     Indication: HEADACHE
     Dosage: TOTAL DAILY DOSE: 440 MG  UNIT DOSE: 220 MG
     Route: 048
     Dates: start: 20080412

REACTIONS (9)
  - BLISTER [None]
  - CONTUSION [None]
  - DIZZINESS [None]
  - HYPERSENSITIVITY [None]
  - LIP BLISTER [None]
  - LIP SWELLING [None]
  - PRURITUS [None]
  - PRURITUS GENERALISED [None]
  - SWELLING FACE [None]
